FAERS Safety Report 7009908-4 (Version None)
Quarter: 2010Q3

REPORT INFORMATION
  Report Type: 
  Country: None (occurrence: None)
  Receive Date: 20100923
  Receipt Date: 20100916
  Transmission Date: 20110219
  Serious: Yes (Hospitalization)
  Sender: FDA-Public Use
  Company Number: PHHO2010US11714

PATIENT
  Age: 49 Year
  Sex: Male

DRUGS (3)
  1. AFINITOR [Suspect]
     Indication: HEAD AND NECK CANCER
     Dosage: UNKNOWN
     Route: 048
     Dates: start: 20100621, end: 20100801
  2. RADIOTHERAPY [Suspect]
  3. CISPLATIN [Concomitant]

REACTIONS (7)
  - APHAGIA [None]
  - MUCOSAL INFLAMMATION [None]
  - NAUSEA [None]
  - ODYNOPHAGIA [None]
  - ORAL PAIN [None]
  - OROPHARYNGEAL PAIN [None]
  - VOMITING [None]
